FAERS Safety Report 9350983 (Version 1)
Quarter: 2013Q2

REPORT INFORMATION
  Report Type: Spontaneous
  Country: DE (occurrence: DE)
  Receive Date: 20130617
  Receipt Date: 20130617
  Transmission Date: 20140414
  Serious: Yes (Hospitalization)
  Sender: FDA-Public Use
  Company Number: DE-ABBOTT-12P-062-0976333-00

PATIENT
  Age: 76 Year
  Sex: Male

DRUGS (12)
  1. ZACPAC [Suspect]
     Indication: HELICOBACTER TEST POSITIVE
     Route: 065
     Dates: start: 20120626
  2. ZACPAC [Suspect]
     Indication: HELICOBACTER TEST POSITIVE
     Dates: start: 20120626
  3. ZACPAC [Suspect]
     Indication: HELICOBACTER TEST POSITIVE
     Dosage: PANTOPRAZOLE SODIUM SESQIHYDRATE
     Route: 065
     Dates: start: 20120626
  4. SAXAGLIPTIN [Suspect]
     Indication: TYPE 2 DIABETES MELLITUS
     Route: 065
     Dates: start: 20101215, end: 20120713
  5. LANTUS [Suspect]
     Indication: TYPE 2 DIABETES MELLITUS
  6. ASPIRINE [Concomitant]
     Indication: PRODUCT USED FOR UNKNOWN INDICATION
  7. DIURETICS [Concomitant]
     Indication: PRODUCT USED FOR UNKNOWN INDICATION
  8. ALL OTHER THERAPEUTIC PRODUCTS [Concomitant]
     Indication: PRODUCT USED FOR UNKNOWN INDICATION
  9. ALL OTHER THERAPEUTIC PRODUCTS [Concomitant]
     Indication: PRODUCT USED FOR UNKNOWN INDICATION
  10. ALL OTHER THERAPEUTIC PRODUCTS [Concomitant]
     Indication: PRODUCT USED FOR UNKNOWN INDICATION
  11. ALL OTHER THERAPEUTIC PRODUCTS [Concomitant]
     Indication: PRODUCT USED FOR UNKNOWN INDICATION
  12. ALL OTHER THERAPEUTIC PRODUCTS [Concomitant]
     Indication: PRODUCT USED FOR UNKNOWN INDICATION

REACTIONS (1)
  - Renal failure acute [Recovered/Resolved]
